FAERS Safety Report 11742079 (Version 2)
Quarter: 2016Q1

REPORT INFORMATION
  Report Type: Spontaneous
  Country: US (occurrence: US)
  Receive Date: 20151116
  Receipt Date: 20160216
  Transmission Date: 20160525
  Serious: No
  Sender: FDA-Public Use
  Company Number: US-PFIZER INC-2015388599

PATIENT
  Age: 47 Year
  Sex: Female
  Weight: 72 kg

DRUGS (11)
  1. XELJANZ [Suspect]
     Active Substance: TOFACITINIB CITRATE
     Indication: OSTEOARTHRITIS
  2. XELJANZ [Suspect]
     Active Substance: TOFACITINIB CITRATE
     Indication: ARTHRITIS
     Dosage: 5 MG, 2X/DAY
     Dates: start: 2014
  3. TRAMADOL. [Concomitant]
     Active Substance: TRAMADOL
     Indication: PAIN
     Dosage: 50 MG, AS NEEDED FOR PAIN (
     Dates: start: 2014
  4. ONE A DAY [Concomitant]
     Indication: RHEUMATOID ARTHRITIS
     Dosage: UNK UNK, 1X/DAY
  5. ONE A DAY [Concomitant]
     Indication: VEGETARIAN
  6. CENTRUM [Concomitant]
     Active Substance: VITAMINS
     Indication: VEGETARIAN
  7. FOLIC ACID. [Concomitant]
     Active Substance: FOLIC ACID
     Dosage: 1 MG, DAILY
     Dates: start: 2014
  8. CLINORIL [Concomitant]
     Active Substance: SULINDAC
     Indication: ARTHRITIS
     Dosage: 200 MG, 2X/DAY
  9. FLU SHOT [Suspect]
     Active Substance: INFLUENZA VIRUS VACCINE
     Indication: IMMUNISATION
     Dosage: UNK
  10. METHOTREXATE [Concomitant]
     Active Substance: METHOTREXATE
     Indication: IMMUNOSUPPRESSANT DRUG THERAPY
     Dosage: 10 MG, WEEKLY (10MG IN THE MORNING AND 10MG IN THE EVENING)
     Dates: start: 2014
  11. CENTRUM [Concomitant]
     Active Substance: VITAMINS
     Indication: RHEUMATOID ARTHRITIS
     Dosage: 1 DF, DAILY (ONE VITAMIN DAILY)

REACTIONS (5)
  - Joint injury [Unknown]
  - Impaired work ability [Unknown]
  - Viral infection [Unknown]
  - Weight increased [Unknown]
  - Grip strength decreased [Unknown]
